FAERS Safety Report 25824868 (Version 3)
Quarter: 2025Q3

REPORT INFORMATION
  Report Type: Spontaneous
  Country: US (occurrence: US)
  Receive Date: 20250919
  Receipt Date: 20250924
  Transmission Date: 20251020
  Serious: Yes (Other)
  Sender: PFIZER
  Company Number: US-PFIZER INC-202500183747

PATIENT
  Age: 52 Year
  Sex: Female

DRUGS (1)
  1. XELJANZ [Suspect]
     Active Substance: TOFACITINIB CITRATE

REACTIONS (5)
  - Autoimmune disorder [Not Recovered/Not Resolved]
  - Neoplasm malignant [Unknown]
  - Pain [Unknown]
  - Illness [Not Recovered/Not Resolved]
  - COVID-19 [Unknown]
